FAERS Safety Report 4788200-2 (Version None)
Quarter: 2005Q4

REPORT INFORMATION
  Report Type: 
  Country: None (occurrence: None)
  Receive Date: 20051003
  Receipt Date: 20050921
  Transmission Date: 20060501
  Serious: Yes (Death, Life-Threatening, Hospitalization)
  Sender: FDA-Public Use
  Company Number: 217977

PATIENT
  Age: 63 Year
  Sex: Male

DRUGS (13)
  1. MABTHERA (RITUXIMAB) CONC FOR SOLUTION FOR INFUSION [Suspect]
     Indication: B-CELL LYMPHOMA
     Dosage: 712 MG, SINGLE,
     Dates: start: 20050803, end: 20050803
  2. CYCLOPHOSPHAMIDE [Suspect]
     Indication: B-CELL LYMPHOMA
     Dosage: (SEE IMAGE)
     Dates: start: 20050609
  3. CYCLOPHOSPHAMIDE [Suspect]
     Indication: B-CELL LYMPHOMA
     Dosage: (SEE IMAGE)
     Dates: start: 20050630
  4. CYCLOPHOSPHAMIDE [Suspect]
     Indication: B-CELL LYMPHOMA
     Dosage: (SEE IMAGE)
     Dates: start: 20050803
  5. DOXORUBICIN HCL [Suspect]
     Indication: B-CELL LYMPHOMA
     Dates: start: 20050609
  6. DOXORUBICIN HCL [Suspect]
     Indication: B-CELL LYMPHOMA
     Dates: start: 20050630
  7. DOXORUBICIN HCL [Suspect]
     Indication: B-CELL LYMPHOMA
     Dates: start: 20050803
  8. VINCRISTINE [Suspect]
     Indication: B-CELL LYMPHOMA
     Dates: start: 20050609
  9. VINCRISTINE [Suspect]
     Indication: B-CELL LYMPHOMA
     Dates: start: 20050630
  10. VINCRISTINE [Suspect]
     Indication: B-CELL LYMPHOMA
     Dates: start: 20050803
  11. PREDNISONE [Suspect]
     Indication: B-CELL LYMPHOMA
     Dates: start: 20050609
  12. PREDNISONE [Suspect]
     Indication: B-CELL LYMPHOMA
     Dates: start: 20050630
  13. PREDNISONE [Suspect]
     Indication: B-CELL LYMPHOMA
     Dates: start: 20050803

REACTIONS (9)
  - CARDIOVASCULAR DISORDER [None]
  - CEREBRAL HAEMORRHAGE [None]
  - FLUID INTAKE REDUCED [None]
  - GENERAL PHYSICAL HEALTH DETERIORATION [None]
  - HAEMATOTOXICITY [None]
  - MUCOSAL INFLAMMATION [None]
  - ORAL INTAKE REDUCED [None]
  - PANCYTOPENIA [None]
  - RESPIRATORY DEPRESSION [None]
